FAERS Safety Report 15540589 (Version 3)
Quarter: 2019Q2

REPORT INFORMATION
  Report Type: Spontaneous
  Country: CA (occurrence: CA)
  Receive Date: 20181023
  Receipt Date: 20190513
  Transmission Date: 20190711
  Serious: Yes (Life-Threatening, Hospitalization, Other)
  Sender: FDA-Public Use
  Company Number: CA-SUN PHARMACEUTICAL INDUSTRIES LTD-2018US-188894

PATIENT
  Age: 16 Year
  Sex: Female
  Weight: 76 kg

DRUGS (4)
  1. NAPROXEN. [Suspect]
     Active Substance: NAPROXEN
     Indication: PRODUCT USED FOR UNKNOWN INDICATION
     Dosage: 250 TABLETS
     Route: 048
  2. ACETAMINOPHEN. [Suspect]
     Active Substance: ACETAMINOPHEN
     Indication: PRODUCT USED FOR UNKNOWN INDICATION
     Dosage: 325 TABLETS
     Route: 048
  3. ACETAMINOPHEN. [Suspect]
     Active Substance: ACETAMINOPHEN
     Indication: PRODUCT USED FOR UNKNOWN INDICATION
     Dosage: 72 TABLETS
     Route: 048
  4. PRAZOSIN. [Suspect]
     Active Substance: PRAZOSIN
     Indication: NIGHTMARE
     Dosage: 55 TABLETS
     Route: 048

REACTIONS (10)
  - Sinus tachycardia [Unknown]
  - Vomiting [Unknown]
  - Somnolence [Unknown]
  - Heart rate increased [Recovering/Resolving]
  - Hypotension [Recovered/Resolved]
  - Altered state of consciousness [Unknown]
  - Toxicity to various agents [Unknown]
  - Electrocardiogram QT prolonged [Recovering/Resolving]
  - Overdose [Unknown]
  - Metabolic acidosis [Recovering/Resolving]
